FAERS Safety Report 4300673-8 (Version None)
Quarter: 2004Q1

REPORT INFORMATION
  Report Type: 
  Country: None (occurrence: None)
  Receive Date: 20040218
  Receipt Date: 20040204
  Transmission Date: 20041129
  Serious: Yes (Death)
  Sender: FDA-Public Use
  Company Number: JP_040102488

PATIENT
  Age: 30 Year
  Sex: Female
  Weight: 75 kg

DRUGS (6)
  1. ZYPREXA [Suspect]
     Indication: SCHIZOPHRENIA, DISORGANISED TYPE
     Dosage: 10 MG/DAY
     Route: 048
     Dates: start: 20030310
  2. ROHYPNOL (FLUNITRAZEPAM) [Concomitant]
  3. PURSENNID (SENNA LEAF) [Concomitant]
  4. MERCAZOLE (THIAMAZOLE) [Concomitant]
  5. HIRNAMIN (LEVOMEPROMAZINE) [Concomitant]
  6. ISOMYTAL(AMOBARBITAL) [Concomitant]

REACTIONS (13)
  - ALANINE AMINOTRANSFERASE INCREASED [None]
  - BLOOD ALKALINE PHOSPHATASE INCREASED [None]
  - BRONCHITIS [None]
  - EOSINOPHIL COUNT INCREASED [None]
  - FACE OEDEMA [None]
  - GAMMA-GLUTAMYLTRANSFERASE INCREASED [None]
  - HAEMOGLOBIN DECREASED [None]
  - HYPOTHYROIDISM [None]
  - LYMPHOCYTE COUNT DECREASED [None]
  - NEUTROPHIL COUNT INCREASED [None]
  - RED BLOOD CELL COUNT DECREASED [None]
  - SLEEP APNOEA SYNDROME [None]
  - SOMNOLENCE [None]
